FAERS Safety Report 20429570 (Version 1)
Quarter: 2022Q1

REPORT INFORMATION
  Report Type: Report from Study
  Country: FR (occurrence: FR)
  Receive Date: 20220204
  Receipt Date: 20220204
  Transmission Date: 20220423
  Serious: Yes (Other)
  Sender: FDA-Public Use
  Company Number: FR-SERVIER-S19006331

PATIENT

DRUGS (7)
  1. PEGASPARGASE [Suspect]
     Active Substance: PEGASPARGASE
     Indication: Acute lymphocytic leukaemia
     Dosage: 4500 IU ON D12
     Route: 042
     Dates: start: 20190318
  2. TN UNSPECIFIED [Concomitant]
     Indication: Acute lymphocytic leukaemia
     Dosage: 110 MG, ON DAYS 8 TO 28
     Route: 048
     Dates: start: 20190314, end: 20190403
  3. TN UNSPECIFIED [Concomitant]
     Indication: Acute lymphocytic leukaemia
     Dosage: 2 MG, ON DAYS 8, 15, 22 AND 29
     Route: 042
     Dates: start: 20190314, end: 20190404
  4. TN UNSPECIFIED [Concomitant]
     Indication: Acute lymphocytic leukaemia
     Dosage: 55 MG, ON DAYS 8, 15, 22 AND 29
     Route: 042
     Dates: start: 20190314, end: 20190404
  5. TN UNSPECIFIED [Concomitant]
     Indication: Acute lymphocytic leukaemia
     Dosage: 15 MG, ON DAYS 12 AND 33
     Route: 037
     Dates: start: 20190318, end: 20190408
  6. TN UNSPECIFIED [Concomitant]
     Indication: Acute lymphocytic leukaemia
     Dosage: 30 MG, ON DAYS 12 AND 33
     Route: 037
     Dates: start: 20190318, end: 20190408
  7. TN UNSPECIFIED [Concomitant]
     Indication: Acute lymphocytic leukaemia
     Dosage: 15 MG, ON DAYS 12 AND 33
     Route: 037
     Dates: start: 20190318, end: 20190408

REACTIONS (2)
  - Hypofibrinogenaemia [Recovering/Resolving]
  - Sepsis [Recovered/Resolved]

NARRATIVE: CASE EVENT DATE: 20190325
